FAERS Safety Report 8371313-6 (Version None)
Quarter: 2012Q2

REPORT INFORMATION
  Report Type: 
  Country: None (occurrence: None)
  Receive Date: 20120518
  Receipt Date: 20120508
  Transmission Date: 20120825
  Serious: Yes (Other)
  Sender: FDA-Public Use
  Company Number: FR-BRISTOL-MYERS SQUIBB COMPANY-16577603

PATIENT
  Age: 5 Year
  Sex: Male
  Weight: 15 kg

DRUGS (4)
  1. VENTOLIN [Concomitant]
     Indication: ASTHMA
     Dosage: DOSIS: 0,2 MG 2 GANGE DAGLIG EFTER BEHOV (F??A?1/2 GANGE I PERIODEN).
     Route: 055
  2. ABILIFY [Suspect]
     Indication: ATTENTION DEFICIT/HYPERACTIVITY DISORDER
     Dosage: DOSIS: START 0,5 MG OM MORGENEN. FRA 12FEB2012: 1 MG OM AFTENEN.
     Route: 048
     Dates: start: 20120101, end: 20120308
  3. SINGULAIR [Concomitant]
     Indication: ASTHMA
     Route: 048
  4. FLUTICASONE PROPIONATE [Concomitant]
     Indication: ASTHMA
     Route: 055

REACTIONS (9)
  - FATIGUE [None]
  - TIC [None]
  - RESTLESSNESS [None]
  - AFFECT LABILITY [None]
  - MOOD SWINGS [None]
  - SOMNOLENCE [None]
  - DIZZINESS POSTURAL [None]
  - AGGRESSION [None]
  - MUSCLE RIGIDITY [None]
